FAERS Safety Report 10484152 (Version 1)
Quarter: 2014Q3

REPORT INFORMATION
  Report Type: Report from Study
  Country: AT (occurrence: AT)
  Receive Date: 20140930
  Receipt Date: 20140930
  Transmission Date: 20150326
  Serious: Yes (Death, Life-Threatening)
  Sender: FDA-Public Use
  Company Number: AT-CELGENE-009-21660-14093271

PATIENT
  Age: 65 Year
  Sex: Male

DRUGS (1)
  1. ABRAXANE [Suspect]
     Active Substance: PACLITAXEL
     Indication: PANCREATIC CARCINOMA METASTATIC
     Route: 041
     Dates: start: 20140522, end: 20140821

REACTIONS (1)
  - Aortic aneurysm rupture [Fatal]

NARRATIVE: CASE EVENT DATE: 20140904
